FAERS Safety Report 8245886-8 (Version None)
Quarter: 2012Q1

REPORT INFORMATION
  Report Type: 
  Country: None (occurrence: None)
  Receive Date: 20120330
  Receipt Date: 20120322
  Transmission Date: 20120608
  Serious: Yes (Hospitalization, Disabling, Other)
  Sender: FDA-Public Use
  Company Number: GB-ACCORD-010425

PATIENT
  Age: 71 Year
  Sex: Male

DRUGS (7)
  1. CYPROTERONE ACETATE [Suspect]
     Indication: PROSTATE CANCER
     Dosage: 100 MG TID
     Route: 048
     Dates: start: 20110628, end: 20110801
  2. ALLOPURINOL [Concomitant]
  3. SIMVASTATIN [Suspect]
     Indication: HYPERCHOLESTEROLAEMIA
     Dosage: 40 MG, QD
     Route: 048
     Dates: start: 20090730, end: 20110801
  4. BENDROFLUMETHIAZIDE [Concomitant]
  5. PROSTEP [Concomitant]
  6. ATENOLOL [Concomitant]
  7. ASPIRIN [Concomitant]
     Dosage: 75 MG, QD
     Route: 048
     Dates: start: 20090101

REACTIONS (3)
  - LIVER FUNCTION TEST ABNORMAL [None]
  - DRUG INTERACTION [None]
  - RHABDOMYOLYSIS [None]
